FAERS Safety Report 5008477-8 (Version None)
Quarter: 2006Q2

REPORT INFORMATION
  Report Type: 
  Country: None (occurrence: None)
  Receive Date: 20060522
  Receipt Date: 20060522
  Transmission Date: 20061013
  Serious: Yes (Other)
  Sender: FDA-Public Use
  Company Number: None

PATIENT
  Age: 39 Year
  Sex: Female
  Weight: 92.9874 kg

DRUGS (1)
  1. LEVOTHYROXINE    125 MCG    MYLAN [Suspect]
     Indication: AUTOIMMUNE THYROIDITIS
     Dosage: 125 MCG   1X PER DAY   PO
     Route: 048
     Dates: start: 20051129, end: 20060220

REACTIONS (8)
  - GENERAL PHYSICAL HEALTH DETERIORATION [None]
  - HAIR DISORDER [None]
  - HYPOTHYROIDISM [None]
  - MOBILITY DECREASED [None]
  - MUSCULOSKELETAL STIFFNESS [None]
  - PAIN IN EXTREMITY [None]
  - PHARMACEUTICAL PRODUCT COMPLAINT [None]
  - WEIGHT INCREASED [None]
